FAERS Safety Report 8721275 (Version 2)
Quarter: 2012Q4

REPORT INFORMATION
  Report Type: 
  Country: CA (occurrence: CA)
  Receive Date: 20120813
  Receipt Date: 20121011
  Transmission Date: 20130627
  Serious: Yes (Hospitalization)
  Sender: FDA-Public Use
  Company Number: PHHY2012CA068206

PATIENT
  Sex: Male

DRUGS (9)
  1. RISPERIDONE [Suspect]
     Indication: DEMENTIA
     Route: 048
  2. AMLODIPINE [Concomitant]
  3. VITAMIN B12 [Concomitant]
  4. DOXAZOSIN [Concomitant]
  5. FUROSEMIDE [Concomitant]
  6. METOPROLOL [Concomitant]
  7. QUETIAPINE [Concomitant]
  8. RABEPRAZOLE [Concomitant]
  9. SENOKOT [Concomitant]

REACTIONS (3)
  - Angina pectoris [Recovered/Resolved]
  - Chest discomfort [Recovered/Resolved]
  - Intestinal obstruction [Recovered/Resolved]
